FAERS Safety Report 5931022-7 (Version None)
Quarter: 2008Q4

REPORT INFORMATION
  Report Type: 
  Country: None (occurrence: None)
  Receive Date: 20081021
  Receipt Date: 20081007
  Transmission Date: 20090506
  Serious: Yes (Other)
  Sender: FDA-Public Use
  Company Number: 100#03#2008-05094

PATIENT
  Age: 45 Year
  Sex: Male

DRUGS (1)
  1. CIPROMED(TABLETS) (CIPROFLOXACIN) [Suspect]
     Indication: DRUG USE FOR UNKNOWN INDICATION
     Dosage: 500 MG TWICE DAILY
     Route: 048
     Dates: start: 20080704

REACTIONS (3)
  - EAR DISCOMFORT [None]
  - TINNITUS [None]
  - VERTIGO [None]
